FAERS Safety Report 5022022-2 (Version None)
Quarter: 2006Q2

REPORT INFORMATION
  Report Type: 
  Country: None (occurrence: None)
  Receive Date: 20060609
  Receipt Date: 20060602
  Transmission Date: 20061013
  Serious: Yes (Hospitalization)
  Sender: FDA-Public Use
  Company Number: HU-SP-2006-01355

PATIENT
  Age: 27 Year
  Sex: Male

DRUGS (25)
  1. IMMUCYST [Suspect]
     Indication: BLADDER CANCER
     Route: 043
     Dates: start: 20050713, end: 20050713
  2. IMMUCYST [Suspect]
     Route: 043
     Dates: start: 20050720, end: 20050720
  3. IMMUCYST [Suspect]
     Route: 043
     Dates: start: 20050727, end: 20050727
  4. IMMUCYST [Suspect]
     Route: 043
     Dates: start: 20050803, end: 20050803
  5. IMMUCYST [Suspect]
     Route: 043
     Dates: start: 20050810, end: 20050810
  6. IMMUCYST [Suspect]
     Route: 043
     Dates: start: 20050817, end: 20050817
  7. IMMUCYST [Suspect]
     Route: 043
     Dates: start: 20051005, end: 20051005
  8. IMMUCYST [Suspect]
     Route: 043
     Dates: start: 20051012, end: 20051012
  9. IMMUCYST [Suspect]
     Route: 043
     Dates: start: 20051019, end: 20051019
  10. IMMUCYST [Suspect]
     Route: 043
     Dates: start: 20051229, end: 20051229
  11. IMMUCYST [Suspect]
     Route: 043
     Dates: start: 20060104, end: 20060104
  12. IMMUCYST [Suspect]
     Route: 043
     Dates: start: 20060111, end: 20060111
  13. LEVOFLOXACIN [Concomitant]
     Dates: start: 20060105, end: 20060111
  14. PIROXICAM [Concomitant]
     Dates: start: 20060105, end: 20060113
  15. AMOXICILLIN + CLAVULANATE POTASSIUM [Concomitant]
     Dates: start: 20060111, end: 20060117
  16. ACETAMINOPHEN [Concomitant]
     Dates: start: 20060104, end: 20060106
  17. NORFLOXACIN [Concomitant]
     Dates: start: 20050711, end: 20050712
  18. STREPTOMYCIN [Concomitant]
     Dates: start: 20060117
  19. PYRAZINAMIDE [Concomitant]
     Dates: start: 20060117
  20. ISONIAZID [Concomitant]
     Dates: start: 20060117
  21. RIFAMPICIN [Concomitant]
     Dates: start: 20060117
  22. ATROPINE SULFATE [Concomitant]
     Dates: start: 20060119, end: 20060119
  23. DIHYDROCODEINE [Concomitant]
     Dates: start: 20060119, end: 20060119
  24. FAMOTIDINE [Concomitant]
  25. METOPROLOL [Concomitant]

REACTIONS (3)
  - PULMONARY TUBERCULOSIS [None]
  - UPPER RESPIRATORY TRACT INFECTION [None]
  - URINARY TRACT INFECTION [None]
